FAERS Safety Report 6015195-6 (Version None)
Quarter: 2008Q4

REPORT INFORMATION
  Report Type: 
  Country: None (occurrence: None)
  Receive Date: 20081219
  Receipt Date: 20081219
  Transmission Date: 20090506
  Serious: Yes (Hospitalization)
  Sender: FDA-Public Use
  Company Number: None

PATIENT
  Age: 57 Year
  Sex: Male
  Weight: 89.54 kg

DRUGS (2)
  1. DEPAKOTE [Suspect]
     Indication: BIPOLAR I DISORDER
     Dosage: 1500 MG EVERY DAY PO
     Route: 048
     Dates: start: 20081129, end: 20081203
  2. DEPAKOTE [Suspect]
     Dosage: 1000 MG EVERY DAY PO
     Route: 048
     Dates: start: 20081128, end: 20081129

REACTIONS (2)
  - HEPATIC ENZYME INCREASED [None]
  - HYPERAMMONAEMIA [None]
